FAERS Safety Report 6888819-9 (Version None)
Quarter: 2010Q3

REPORT INFORMATION
  Report Type: 
  Country: None (occurrence: None)
  Receive Date: 20100730
  Receipt Date: 20100720
  Transmission Date: 20110219
  Serious: Yes (Hospitalization)
  Sender: FDA-Public Use
  Company Number: US-ABBOTT-10P-163-0659001-00

PATIENT
  Age: 65 Year
  Sex: Male

DRUGS (5)
  1. LUPRON DEPOT [Suspect]
     Indication: PROSTATE CANCER
     Dosage: MONTHLY
  2. AMARYL [Concomitant]
     Indication: DIABETES MELLITUS
  3. VYTORIN [Concomitant]
     Indication: HYPERCHOLESTEROLAEMIA
  4. METOPROLOL TARTRATE [Concomitant]
     Indication: PRODUCT USED FOR UNKNOWN INDICATION
  5. ALTACE [Concomitant]
     Indication: HYPERTENSION

REACTIONS (1)
  - CELLULITIS [None]
